FAERS Safety Report 5563193-9 (Version None)
Quarter: 2007Q4

REPORT INFORMATION
  Report Type: 
  Country: None (occurrence: None)
  Receive Date: 20071212
  Receipt Date: 20071212
  Transmission Date: 20080405
  Serious: No
  Sender: FDA-Public Use
  Company Number: None

PATIENT
  Age: 55 Year
  Sex: Male
  Weight: 95.2554 kg

DRUGS (2)
  1. CRESTOR [Suspect]
     Indication: BLOOD CHOLESTEROL INCREASED
     Dosage: 10MG  DAILY  PO
     Route: 048
     Dates: start: 20071123, end: 20071127
  2. CRESTOR [Suspect]
     Indication: BLOOD TRIGLYCERIDES INCREASED
     Dosage: 10MG  DAILY  PO
     Route: 048
     Dates: start: 20071123, end: 20071127

REACTIONS (2)
  - MUSCULAR WEAKNESS [None]
  - MYALGIA [None]
